FAERS Safety Report 17245223 (Version 1)
Quarter: 2020Q1

REPORT INFORMATION
  Report Type: Spontaneous
  Country: FR (occurrence: FR)
  Receive Date: 20200108
  Receipt Date: 20200108
  Transmission Date: 20200409
  Serious: Yes (Other)
  Sender: FDA-Public Use
  Company Number: FR-TEVA-2020-FR-1164095

PATIENT
  Age: 64 Year
  Sex: Male
  Weight: 86 kg

DRUGS (3)
  1. CIALIS 5 MG, COMPRIME PELLICULE [Concomitant]
     Indication: ERECTILE DYSFUNCTION
     Dosage: 5 MG
     Route: 048
     Dates: start: 20140101
  2. OMEPRAZOLE. [Concomitant]
     Active Substance: OMEPRAZOLE
     Indication: GASTRITIS
     Dosage: 20 MG
     Route: 048
     Dates: start: 20190101
  3. CABERGOLINE TEVA 0,5 MG, COMPRIME [Suspect]
     Active Substance: CABERGOLINE
     Indication: PITUITARY TUMOUR BENIGN
     Route: 048
     Dates: start: 20191010, end: 20191114

REACTIONS (4)
  - Drug ineffective [Recovered/Resolved]
  - Product substitution issue [Recovered/Resolved]
  - Loss of libido [Recovered/Resolved]
  - Hyperprolactinaemia [Recovered/Resolved]

NARRATIVE: CASE EVENT DATE: 20191010
